FAERS Safety Report 25379365 (Version 1)
Quarter: 2025Q2

REPORT INFORMATION
  Report Type: Spontaneous
  Country: US (occurrence: None)
  Receive Date: 20250529
  Receipt Date: 20250529
  Transmission Date: 20250717
  Serious: Yes (Other)
  Sender: FDA-CTU
  Company Number: None

PATIENT
  Age: 69 Year
  Sex: Female
  Weight: 57.15 kg

DRUGS (22)
  1. RECLAST [Suspect]
     Active Substance: ZOLEDRONIC ACID
     Indication: Osteoporosis
     Route: 042
  2. Estradiol vaginal cream Rx Pea size amount 3x/week [Concomitant]
  3. Medication OTC Dose is per day unless noted [Concomitant]
  4. Aller-tec / Zyrtec OTC 10 mg each [Concomitant]
  5. Allegra OTC 180 mg each [Concomitant]
  6. Fungal Nail OTC small amount on both big toe nails for fungus [Concomitant]
  7. Femdophilus (Probiotic) OTC 1 pill [Concomitant]
  8. 1 billion CFUs [Concomitant]
  9. VITAMIN D3 [Concomitant]
     Active Substance: CHOLECALCIFEROL
  10. OTC 1 1000mg per day [Concomitant]
  11. Kefir(plain) - a probiotic Food 2 ounces Molasse Blackstrap Food 1 Tbs [Concomitant]
  12. Healthy Fiber (Guar Gum= Prebiotic) OTC 20 cc dissolved in water/ stop [Concomitant]
  13. Magnesium Glycinate OTC 100 mg.; 3x a day [Concomitant]
  14. Fish oil OTC 300 mg [Concomitant]
  15. omega each; 4 per day [Concomitant]
  16. Vitamin B 12 OTC 500 mcg [Concomitant]
  17. Nature Made Vit B12 [Concomitant]
  18. Vitamin C OTC 500 mg [Concomitant]
  19. Melatoniin OTC 3 mg., as needed; 5 mg [Concomitant]
  20. Vital Nutrients DGL (licorice) OTC 1/8 tsp. after a meal and before be [Concomitant]
  21. Lactaid Enzyme/Dairy aid OTC 1 to 3 pills as needed for Lactose intol [Concomitant]
  22. Fennel Seed by Nature^s Way OTC 1 pill as needed for gas, bloating, or [Concomitant]

REACTIONS (4)
  - Gait inability [None]
  - Pain in extremity [None]
  - Arthralgia [None]
  - Condition aggravated [None]

NARRATIVE: CASE EVENT DATE: 20240311
